FAERS Safety Report 4945126-9 (Version None)
Quarter: 2006Q1

REPORT INFORMATION
  Report Type: 
  Country: None (occurrence: None)
  Receive Date: 20060314
  Receipt Date: 20060314
  Transmission Date: 20060701
  Serious: No
  Sender: FDA-Public Use
  Company Number: None

PATIENT
  Age: 25 Year
  Sex: Female

DRUGS (12)
  1. WELLBUTRIN [Suspect]
     Dates: start: 20000410, end: 20050212
  2. HYOSCYAMINE [Concomitant]
  3. XANAX [Concomitant]
  4. DARVOCET [Concomitant]
  5. WELLBUTRIN [Concomitant]
  6. CITRUCEL [Concomitant]
  7. NEXIUM [Concomitant]
  8. LEVBID [Concomitant]
  9. NULEV [Concomitant]
  10. DARVOCET [Concomitant]
  11. NEXIUM [Concomitant]
  12. XANAX [Concomitant]

REACTIONS (15)
  - ABDOMINAL PAIN [None]
  - ALANINE AMINOTRANSFERASE INCREASED [None]
  - ASPARTATE AMINOTRANSFERASE INCREASED [None]
  - BODY TEMPERATURE DECREASED [None]
  - FREQUENT BOWEL MOVEMENTS [None]
  - HEPATIC NECROSIS [None]
  - HEPATIC TRAUMA [None]
  - HEPATOCELLULAR DAMAGE [None]
  - HEPATOTOXICITY [None]
  - INFLAMMATION [None]
  - IRRITABLE BOWEL SYNDROME [None]
  - LIVER DISORDER [None]
  - LIVER FUNCTION TEST ABNORMAL [None]
  - PHARYNGOLARYNGEAL PAIN [None]
  - URINARY TRACT INFECTION [None]
